FAERS Safety Report 24105153 (Version 3)
Quarter: 2025Q1

REPORT INFORMATION
  Report Type: Report from Study
  Country: SE (occurrence: SE)
  Receive Date: 20240717
  Receipt Date: 20250122
  Transmission Date: 20250408
  Serious: Yes (Other)
  Sender: PFIZER
  Company Number: SE-PFIZER INC-2020171522

PATIENT
  Age: 12 Year
  Sex: Female
  Weight: 50 kg

DRUGS (4)
  1. LORLATINIB [Suspect]
     Active Substance: LORLATINIB
     Indication: Neuroblastoma recurrent
     Dosage: 100 MG, 1X/DAY
     Route: 048
     Dates: start: 20190927
  2. LORLATINIB [Suspect]
     Active Substance: LORLATINIB
     Dosage: 110 MG, DAILY (ABOUT 73 MG/M2)
  3. LORLATINIB [Suspect]
     Active Substance: LORLATINIB
     Dates: start: 20210301
  4. LORLATINIB [Suspect]
     Active Substance: LORLATINIB
     Dosage: 140 MG, 1X/DAY (5 X 25 MG + 3 X 5 MG)

REACTIONS (5)
  - Pulmonary oedema [Unknown]
  - Anaemia [Not Recovered/Not Resolved]
  - Weight increased [Not Recovered/Not Resolved]
  - Arthritis [Recovered/Resolved]
  - Blood cholesterol increased [Not Recovered/Not Resolved]

NARRATIVE: CASE EVENT DATE: 20191201
